FAERS Safety Report 5804123-1 (Version None)
Quarter: 2008Q3

REPORT INFORMATION
  Report Type: 
  Country: None (occurrence: None)
  Receive Date: 20080709
  Receipt Date: 20080630
  Transmission Date: 20090109
  Serious: Yes (Other)
  Sender: FDA-Public Use
  Company Number: US-JNJFOC-20080606969

PATIENT
  Sex: Female
  Weight: 68.04 kg

DRUGS (2)
  1. ULTRAM [Suspect]
     Indication: PAIN
  2. COUMADIN [Concomitant]
     Indication: DEEP VEIN THROMBOSIS
     Route: 048

REACTIONS (1)
  - CONVULSION [None]
